FAERS Safety Report 5673345-5 (Version None)
Quarter: 2008Q1

REPORT INFORMATION
  Report Type: 
  Country: None (occurrence: None)
  Receive Date: 20080317
  Receipt Date: 20080306
  Transmission Date: 20080703
  Serious: No
  Sender: FDA-Public Use
  Company Number: 2008030055

PATIENT
  Age: 72 Year
  Sex: Male
  Weight: 70 kg

DRUGS (1)
  1. VOLUVEN [Suspect]
     Indication: OPERATIVE HAEMORRHAGE
     Dosage: 200 ML, INTRAVENOUS DRIP
     Route: 041
     Dates: start: 20080304, end: 20080304

REACTIONS (1)
  - ANGIOEDEMA [None]
